FAERS Safety Report 21688687 (Version 5)
Quarter: 2025Q2

REPORT INFORMATION
  Report Type: Spontaneous
  Country: US (occurrence: US)
  Receive Date: 20221206
  Receipt Date: 20250404
  Transmission Date: 20250717
  Serious: No
  Sender: PFIZER
  Company Number: US-PFIZER INC-PV202200117389

PATIENT
  Age: 70 Year
  Sex: Female

DRUGS (2)
  1. XELJANZ XR [Suspect]
     Active Substance: TOFACITINIB CITRATE
     Indication: Rheumatoid arthritis
  2. XELJANZ XR [Suspect]
     Active Substance: TOFACITINIB CITRATE
     Indication: Psoriatic arthropathy

REACTIONS (13)
  - Drug ineffective [Unknown]
  - Headache [Not Recovered/Not Resolved]
  - Herpes zoster [Unknown]
  - Abdominal pain upper [Unknown]
  - Muscle spasms [Recovering/Resolving]
  - Weight increased [Unknown]
  - Gastritis bacterial [Unknown]
  - Dyspnoea [Unknown]
  - Loss of personal independence in daily activities [Unknown]
  - Stress [Unknown]
  - Depressed mood [Unknown]
  - Road traffic accident [Recovering/Resolving]
  - Neck pain [Recovering/Resolving]

NARRATIVE: CASE EVENT DATE: 20220101
